FAERS Safety Report 5094836-4 (Version None)
Quarter: 2006Q3

REPORT INFORMATION
  Report Type: 
  Country: None (occurrence: None)
  Receive Date: 20060830
  Receipt Date: 20060830
  Transmission Date: 20061208
  Serious: Yes (Other)
  Sender: FDA-Public Use
  Company Number: None

PATIENT
  Sex: Female
  Weight: 90.7194 kg

DRUGS (2)
  1. BONIVA [Suspect]
     Indication: BONE SCAN ABNORMAL
     Dosage: 1   Q MO   PO
     Route: 048
     Dates: start: 20060801, end: 20060801
  2. BONIVA [Suspect]
     Indication: FRACTURE
     Dosage: 1   Q MO   PO
     Route: 048
     Dates: start: 20060801, end: 20060801

REACTIONS (6)
  - CHILLS [None]
  - FATIGUE [None]
  - INFLUENZA LIKE ILLNESS [None]
  - NAUSEA [None]
  - PAIN [None]
  - PYREXIA [None]
